FAERS Safety Report 7824424-5 (Version None)
Quarter: 2011Q4

REPORT INFORMATION
  Report Type: 
  Country: None (occurrence: None)
  Receive Date: 20111019
  Receipt Date: 20111010
  Transmission Date: 20120403
  Serious: Yes (Other)
  Sender: FDA-Public Use
  Company Number: US-JNJFOC-20111004530

PATIENT
  Age: 9 Year
  Sex: Male
  Weight: 20.41 kg

DRUGS (2)
  1. CHILDREN'S BENADRYL ALLERGY [Suspect]
     Indication: SLEEP DISORDER THERAPY
     Dosage: ONE TEASPOONFUL TO TWO AND A HALF TEASPOONFUL
     Route: 048
     Dates: start: 20060101
  2. CHILDREN'S BENADRYL ALLERGY [Suspect]
     Route: 048

REACTIONS (3)
  - OFF LABEL USE [None]
  - NEOPLASM [None]
  - PRODUCT QUALITY ISSUE [None]
